FAERS Safety Report 15406918 (Version 1)
Quarter: 2018Q3

REPORT INFORMATION
  Report Type: Spontaneous
  Country: US (occurrence: US)
  Receive Date: 20180912
  Receipt Date: 20180912
  Transmission Date: 20181010
  Serious: No
  Sender: FDA-Public Use
  Company Number: None

PATIENT
  Age: 69 Year
  Sex: Female

DRUGS (1)
  1. TALTZ [Suspect]
     Active Substance: IXEKIZUMAB
     Indication: PSORIASIS
     Route: 058
     Dates: start: 20180615

REACTIONS (4)
  - Diarrhoea [None]
  - Haemorrhage [None]
  - Haemorrhoids [None]
  - Abdominal pain upper [None]

NARRATIVE: CASE EVENT DATE: 2018
